FAERS Safety Report 9743767 (Version 1)
Quarter: 2013Q4

REPORT INFORMATION
  Report Type: Spontaneous
  Country: US (occurrence: US)
  Receive Date: 20131210
  Receipt Date: 20131210
  Transmission Date: 20140711
  Serious: No
  Sender: FDA-Public Use
  Company Number: US-BIOGENIDEC-2013BI095789

PATIENT
  Age: 43 Year
  Sex: Female

DRUGS (10)
  1. TECFIDERA [Suspect]
     Indication: MULTIPLE SCLEROSIS
     Route: 048
     Dates: start: 20130909
  2. TECFIDERA [Suspect]
     Indication: MULTIPLE SCLEROSIS
     Route: 048
  3. TECFIDERA [Suspect]
     Indication: MULTIPLE SCLEROSIS
     Dates: start: 201309
  4. VITAMIN D3 [Concomitant]
  5. CYCLAFEM [Concomitant]
  6. PREVACID [Concomitant]
  7. PRO-BIOTIC [Concomitant]
  8. MAGNESIUM MALEATE [Concomitant]
  9. MIRALAX [Concomitant]
  10. FIBERCON [Concomitant]

REACTIONS (4)
  - Fatigue [Unknown]
  - Heart rate increased [Unknown]
  - Asthenia [Unknown]
  - Malaise [Unknown]
